FAERS Safety Report 5346264-1 (Version None)
Quarter: 2007Q2

REPORT INFORMATION
  Report Type: 
  Country: None (occurrence: None)
  Receive Date: 20070420
  Receipt Date: 20060608
  Transmission Date: 20071010
  Serious: Yes (Hospitalization)
  Sender: FDA-Public Use
  Company Number: 06P-163-0335692-00

PATIENT
  Age: 67 Year
  Sex: Female

DRUGS (1)
  1. DEPAKOTE [Suspect]
     Indication: BIPOLAR DISORDER
     Dosage: 750 MG, 1IN 1 D, ORAL
     Route: 048
     Dates: start: 20041201, end: 20060113

REACTIONS (1)
  - PANCREATITIS ACUTE [None]
